FAERS Safety Report 8479689-6 (Version None)
Quarter: 2012Q2

REPORT INFORMATION
  Report Type: 
  Country: None (occurrence: None)
  Receive Date: 20120629
  Receipt Date: 20120626
  Transmission Date: 20120825
  Serious: No
  Sender: FDA-Public Use
  Company Number: US-BAYER-2012-064314

PATIENT
  Age: 35 Year
  Sex: Male
  Weight: 84 kg

DRUGS (1)
  1. ALEVE (CAPLET) [Suspect]
     Indication: PAIN
     Dosage: 2 U, TID
     Route: 048
     Dates: end: 20120626

REACTIONS (3)
  - VOMITING [None]
  - NO ADVERSE EVENT [None]
  - ABDOMINAL PAIN UPPER [None]
